FAERS Safety Report 8057553-4 (Version None)
Quarter: 2012Q1

REPORT INFORMATION
  Report Type: 
  Country: None (occurrence: None)
  Receive Date: 20120120
  Receipt Date: 20120111
  Transmission Date: 20120608
  Serious: Yes (Other)
  Sender: FDA-Public Use
  Company Number: FR-BRISTOL-MYERS SQUIBB COMPANY-16349219

PATIENT
  Age: 54 Year
  Sex: Male

DRUGS (5)
  1. LYRICA [Concomitant]
  2. TEMODAL [Suspect]
     Indication: MALIGNANT MELANOMA
     Dosage: 1100 MG IN FIVE DOSES OF 220 MG
     Route: 048
     Dates: start: 20110107, end: 20110901
  3. CARMUSTINE [Suspect]
     Indication: MALIGNANT MELANOMA
     Dosage: 300MG IN SINGLE DOSE
     Route: 042
     Dates: start: 20110107, end: 20110901
  4. ZESTORETIC [Concomitant]
     Dosage: 1DF=20 UNITS NOS
  5. TOFRANIL [Concomitant]

REACTIONS (1)
  - CHOLESTASIS [None]
